FAERS Safety Report 19984079 (Version 1)
Quarter: 2021Q4

REPORT INFORMATION
  Report Type: Spontaneous
  Country: US (occurrence: US)
  Receive Date: 20211022
  Receipt Date: 20211022
  Transmission Date: 20220303
  Serious: No
  Sender: FDA-Public Use
  Company Number: None

PATIENT
  Age: 63 Year
  Sex: Female
  Weight: 67.5 kg

DRUGS (1)
  1. OTEZLA [Suspect]
     Active Substance: APREMILAST
     Indication: Psoriasis
     Dosage: ?          QUANTITY:2 TABLET(S);
     Route: 048
     Dates: start: 20211013

REACTIONS (4)
  - Diarrhoea [None]
  - Headache [None]
  - Vertigo [None]
  - Pulmonary congestion [None]

NARRATIVE: CASE EVENT DATE: 20211013
